FAERS Safety Report 7542945-X (Version None)
Quarter: 2011Q2

REPORT INFORMATION
  Report Type: 
  Country: None (occurrence: None)
  Receive Date: 20110613
  Receipt Date: 20110531
  Transmission Date: 20111010
  Serious: Yes (Other)
  Sender: FDA-Public Use
  Company Number: PHHY2011BR48409

PATIENT
  Sex: Female

DRUGS (1)
  1. DIOVAN [Suspect]
     Dosage: 160 MG, UNK

REACTIONS (7)
  - THROAT IRRITATION [None]
  - LACRIMATION INCREASED [None]
  - HEADACHE [None]
  - RHINITIS [None]
  - DIABETES MELLITUS [None]
  - EYE IRRITATION [None]
  - HYPERTENSION [None]
